FAERS Safety Report 5176489-X (Version None)
Quarter: 2006Q4

REPORT INFORMATION
  Report Type: 
  Country: None (occurrence: None)
  Receive Date: 20061207
  Receipt Date: 20061122
  Transmission Date: 20070319
  Serious: Yes (Hospitalization)
  Sender: FDA-Public Use
  Company Number: MEDI-0005122

PATIENT
  Age: 5 Month
  Sex: Female
  Weight: 4.5 kg

DRUGS (1)
  1. SYNAGIS [Suspect]
     Indication: ANTIVIRAL PROPHYLAXIS
     Dosage: 60 MG, INTRAMUSCULAR
     Route: 030
     Dates: start: 20061107, end: 20061107

REACTIONS (1)
  - MENINGITIS ASEPTIC [None]
